FAERS Safety Report 13137330 (Version 1)
Quarter: 2017Q1

REPORT INFORMATION
  Report Type: Other
  Country: MT (occurrence: MT)
  Receive Date: 20170123
  Receipt Date: 20170123
  Transmission Date: 20170428
  Serious: Yes (Death)
  Sender: FDA-Public Use
  Company Number: MT-HETERO LABS LTD-1062273

PATIENT
  Age: 33 Year
  Sex: Female

DRUGS (2)
  1. LAMIVUDINE AND ZIDOVUDINE [Suspect]
     Active Substance: LAMIVUDINE\ZIDOVUDINE
     Route: 065
  2. LOPINAVIR\ RITONAVIR [Suspect]
     Active Substance: LOPINAVIR\RITONAVIR
     Indication: HIV INFECTION
     Route: 065

REACTIONS (1)
  - Castleman^s disease [Fatal]
